FAERS Safety Report 25679858 (Version 1)
Quarter: 2025Q3

REPORT INFORMATION
  Report Type: Spontaneous
  Country: US (occurrence: US)
  Receive Date: 20250814
  Receipt Date: 20250814
  Transmission Date: 20251020
  Serious: Yes (Hospitalization, Other)
  Sender: AUROBINDO
  Company Number: US-AUROBINDO-AUR-APL-2024-063452

PATIENT
  Age: 70 Year
  Sex: Female
  Weight: 71.2 kg

DRUGS (3)
  1. BELINOSTAT [Suspect]
     Active Substance: BELINOSTAT
     Indication: Ovarian cancer
     Route: 042
     Dates: start: 20240812, end: 20241126
  2. TALAZOPARIB [Suspect]
     Active Substance: TALAZOPARIB
     Indication: Ovarian cancer
     Route: 048
     Dates: start: 20240812, end: 20241126
  3. OMNICEF [Concomitant]
     Active Substance: CEFDINIR
     Indication: Product used for unknown indication
     Route: 065

REACTIONS (1)
  - Dyspnoea [Not Recovered/Not Resolved]

NARRATIVE: CASE EVENT DATE: 20241216
